FAERS Safety Report 9719773 (Version 2)
Quarter: 2013Q4

REPORT INFORMATION
  Report Type: Spontaneous
  Country: JP (occurrence: JP)
  Receive Date: 20131128
  Receipt Date: 20131128
  Transmission Date: 20140711
  Serious: Yes (Hospitalization)
  Sender: FDA-Public Use
  Company Number: JP-009507513-1310JPN012389

PATIENT
  Age: 77 Year
  Sex: Male
  Weight: 71 kg

DRUGS (7)
  1. PNEUMOVAX NP [Suspect]
     Indication: PROPHYLAXIS
     Dosage: .5 ML
     Route: 058
     Dates: start: 20130828, end: 20130828
  2. GASTER [Suspect]
     Indication: GASTRITIS
     Dosage: 20 MG, THE DEVIDED DOSE FREQUENCY UNCERTAIN.
     Route: 048
     Dates: start: 20120111
  3. GASTER [Suspect]
     Indication: GASTRIC ULCER
  4. LENIMEC [Suspect]
     Indication: HYPERTENSION
     Dosage: 5 MG, 1 DAY
     Route: 048
     Dates: start: 20060210
  5. TOWARAT [Suspect]
     Indication: HYPERTENSION
     Dosage: 20 MG, 1 DAY
     Route: 048
     Dates: start: 20040121
  6. CARDENALIN [Suspect]
     Indication: HYPERTENSION
     Dosage: 0.5 MG, 1 DAY
     Route: 048
     Dates: start: 20120703
  7. TICPILONE [Suspect]
     Indication: CEREBRAL INFARCTION
     Dosage: 200 MG, THE DIVIDED DOSE, FREQUENCY UNCERTAIN
     Route: 048
     Dates: start: 20040121

REACTIONS (3)
  - Injection site erythema [Recovered/Resolved]
  - Injection site swelling [Recovered/Resolved]
  - Pyrexia [Recovered/Resolved]
